FAERS Safety Report 10008065 (Version 1)
Quarter: 2014Q1

REPORT INFORMATION
  Report Type: Spontaneous
  Country: BR (occurrence: BR)
  Receive Date: 20140313
  Receipt Date: 20140313
  Transmission Date: 20141002
  Serious: Yes (Other)
  Sender: FDA-Public Use
  Company Number: BR-JNJFOC-20140307047

PATIENT
  Sex: Male
  Weight: 72 kg

DRUGS (4)
  1. REMICADE [Suspect]
     Indication: RHEUMATOID ARTHRITIS
     Route: 042
     Dates: start: 2006
  2. REMICADE [Suspect]
     Indication: RHEUMATOID ARTHRITIS
     Route: 042
     Dates: start: 20140106
  3. REMICADE [Suspect]
     Indication: RHEUMATIC DISORDER
     Route: 042
     Dates: start: 2006
  4. REMICADE [Suspect]
     Indication: RHEUMATIC DISORDER
     Route: 042
     Dates: start: 20140106

REACTIONS (2)
  - Uveitis [Unknown]
  - Anaemia [Unknown]
